FAERS Safety Report 7737926-7 (Version None)
Quarter: 2011Q3

REPORT INFORMATION
  Report Type: 
  Country: None (occurrence: None)
  Receive Date: 20110908
  Receipt Date: 20110906
  Transmission Date: 20111222
  Serious: Yes (Disabling, Other)
  Sender: FDA-Public Use
  Company Number: PHEH2009US16959

PATIENT
  Sex: Female

DRUGS (13)
  1. ZOMETA [Suspect]
  2. ALIMTA [Concomitant]
  3. NEULASTA [Concomitant]
  4. ALOXI [Concomitant]
  5. LORTAB [Concomitant]
  6. VITAMIN B-12 [Concomitant]
  7. ALTACE [Concomitant]
  8. FOSAMAX [Suspect]
  9. CARBOPLATIN [Suspect]
  10. AVASTIN [Concomitant]
  11. GABAPENTIN [Concomitant]
  12. ATIVAN [Concomitant]
  13. DECADRON [Concomitant]

REACTIONS (44)
  - ANXIETY [None]
  - DRUG HYPERSENSITIVITY [None]
  - BLOOD PRESSURE DECREASED [None]
  - SPINAL OSTEOARTHRITIS [None]
  - DYSPNOEA EXERTIONAL [None]
  - VITAMIN B12 INCREASED [None]
  - ORAL CAVITY FISTULA [None]
  - STOMATITIS [None]
  - DIZZINESS [None]
  - HEPATIC CYST [None]
  - UTERINE LEIOMYOMA [None]
  - NEUROPATHY PERIPHERAL [None]
  - SERUM FERRITIN INCREASED [None]
  - OSTEOPENIA [None]
  - BONE LOSS [None]
  - HYPOAESTHESIA [None]
  - OSTEOMYELITIS [None]
  - PLEURAL EFFUSION [None]
  - INJURY [None]
  - PAIN [None]
  - METASTASES TO LUNG [None]
  - LYMPHADENITIS [None]
  - EXPOSED BONE IN JAW [None]
  - ANHEDONIA [None]
  - PERIODONTAL DISEASE [None]
  - LYMPHADENOPATHY [None]
  - OSTEONECROSIS OF JAW [None]
  - TOOTH ABSCESS [None]
  - ARTHRALGIA [None]
  - OSTEOLYSIS [None]
  - OEDEMA PERIPHERAL [None]
  - PATELLA FRACTURE [None]
  - FATIGUE [None]
  - ANAEMIA [None]
  - NAUSEA [None]
  - BREAST CANCER METASTATIC [None]
  - METASTASES TO BONE [None]
  - OSTEOPOROSIS [None]
  - BLOOD ERYTHROPOIETIN INCREASED [None]
  - VOMITING [None]
  - RED BLOOD CELL COUNT DECREASED [None]
  - HAEMOGLOBIN DECREASED [None]
  - WHITE BLOOD CELL COUNT DECREASED [None]
  - TOOTH LOSS [None]
